FAERS Safety Report 7290069-1 (Version None)
Quarter: 2011Q1

REPORT INFORMATION
  Report Type: 
  Country: None (occurrence: None)
  Receive Date: 20110214
  Receipt Date: 20110201
  Transmission Date: 20110831
  Serious: Yes (Other)
  Sender: FDA-Public Use
  Company Number: DE-ELI_LILLY_AND_COMPANY-DE201012006428

PATIENT
  Sex: Female

DRUGS (2)
  1. METFORMIN HYDROCHLORIDE [Concomitant]
     Dosage: 1000 MG, 2/D
     Route: 048
  2. BYETTA [Suspect]
     Indication: TYPE 2 DIABETES MELLITUS
     Dosage: 10 UG, 2/D
     Route: 058
     Dates: start: 20100814

REACTIONS (3)
  - STUPOR [None]
  - MYOCARDIAL INFARCTION [None]
  - UTERINE CANCER [None]
